FAERS Safety Report 18300350 (Version 1)
Quarter: 2020Q3

REPORT INFORMATION
  Report Type: Spontaneous
  Country: US (occurrence: US)
  Receive Date: 20200923
  Receipt Date: 20200923
  Transmission Date: 20201103
  Serious: Yes (Hospitalization)
  Sender: FDA-Public Use
  Company Number: None

PATIENT
  Age: 53 Year
  Sex: Male
  Weight: 73 kg

DRUGS (2)
  1. 5?FLUOROURACIL (5?FU) [Suspect]
     Active Substance: FLUOROURACIL
     Dates: end: 20200828
  2. MITOMYCIN C [Suspect]
     Active Substance: MITOMYCIN
     Dates: end: 20200824

REACTIONS (7)
  - Dermatitis [None]
  - Pain of skin [None]
  - Anorectal discomfort [None]
  - Radiation skin injury [None]
  - Pyrexia [None]
  - Skin disorder [None]
  - Neutrophil count decreased [None]

NARRATIVE: CASE EVENT DATE: 20190906
